FAERS Safety Report 25869008 (Version 2)
Quarter: 2025Q4

REPORT INFORMATION
  Report Type: Report from Study
  Country: BR (occurrence: BR)
  Receive Date: 20251001
  Receipt Date: 20251024
  Transmission Date: 20260118
  Serious: Yes (Other)
  Sender: ROCHE
  Company Number: BR-ROCHE-10000397188

PATIENT
  Age: 52 Year
  Sex: Female
  Weight: 60 kg

DRUGS (7)
  1. MABTHERA [Suspect]
     Active Substance: RITUXIMAB
     Indication: Rheumatoid arthritis
     Dosage: 4 AMPOULES?DATE OF FIRST INFUSION: 09-JUN-2021?DATE OF LAST INFUSION: 04-AUG-2022
     Route: 065
     Dates: start: 2020
  2. PREGABALIN [Concomitant]
     Active Substance: PREGABALIN
     Indication: Pain
  3. PREGABALIN [Concomitant]
     Active Substance: PREGABALIN
     Indication: Dermatomyositis
  4. CARVEDILOL [Concomitant]
     Active Substance: CARVEDILOL
  5. FLUOXETINE [Concomitant]
     Active Substance: FLUOXETINE HYDROCHLORIDE
     Indication: Depression
  6. FLUOXETINE [Concomitant]
     Active Substance: FLUOXETINE HYDROCHLORIDE
     Indication: Anxiety
  7. PREDNISONE [Concomitant]
     Active Substance: PREDNISONE
     Indication: Pain
     Dates: end: 2024

REACTIONS (5)
  - Hepatic function abnormal [Unknown]
  - Osteonecrosis [Unknown]
  - Fibromyalgia [Unknown]
  - Pulmonary fibrosis [Unknown]
  - Asthma [Unknown]
